FAERS Safety Report 10329560 (Version 2)
Quarter: 2014Q3

REPORT INFORMATION
  Report Type: Spontaneous
  Country: US (occurrence: US)
  Receive Date: 20140721
  Receipt Date: 20140804
  Transmission Date: 20150326
  Serious: Yes (Hospitalization)
  Sender: FDA-Public Use
  Company Number: US-JNJFOC-20140711644

PATIENT
  Sex: Male
  Weight: 62.1 kg

DRUGS (17)
  1. IMBRUVICA [Suspect]
     Active Substance: IBRUTINIB
     Indication: CHRONIC LYMPHOCYTIC LEUKAEMIA
     Route: 065
     Dates: start: 20140616, end: 20140708
  2. ASPIRIN. [Concomitant]
     Active Substance: ASPIRIN
  3. DEXILANT [Concomitant]
     Active Substance: DEXLANSOPRAZOLE
  4. LISINOPRIL. [Concomitant]
     Active Substance: LISINOPRIL
  5. PREDNISONE. [Concomitant]
     Active Substance: PREDNISONE
  6. LEVOTHYROXINE [Concomitant]
     Active Substance: LEVOTHYROXINE
  7. FOLIC ACID. [Concomitant]
     Active Substance: FOLIC ACID
  8. FERROUS SULFATE [Concomitant]
     Active Substance: FERROUS SULFATE\FERROUS SULFATE, DRIED
  9. ALLOPURINOL. [Concomitant]
     Active Substance: ALLOPURINOL
  10. NITRO DUR [Concomitant]
  11. RITUXAN [Concomitant]
     Active Substance: RITUXIMAB
  12. METOPROLOL [Concomitant]
     Active Substance: METOPROLOL
  13. MULTIVITAMIN/00097801/ [Concomitant]
  14. CRESTOR [Concomitant]
     Active Substance: ROSUVASTATIN CALCIUM
  15. BENADRYL [Concomitant]
     Active Substance: DIPHENHYDRAMINE HYDROCHLORIDE
  16. PLAVIX [Concomitant]
     Active Substance: CLOPIDOGREL BISULFATE
  17. AMBIEN [Concomitant]
     Active Substance: ZOLPIDEM TARTRATE

REACTIONS (4)
  - Autoimmune haemolytic anaemia [Unknown]
  - Blood bilirubin increased [None]
  - Chest pain [Unknown]
  - Rash [Not Recovered/Not Resolved]

NARRATIVE: CASE EVENT DATE: 2014
